FAERS Safety Report 19396271 (Version 7)
Quarter: 2024Q4

REPORT INFORMATION
  Report Type: Spontaneous
  Country: DE (occurrence: DE)
  Receive Date: 20210610
  Receipt Date: 20241009
  Transmission Date: 20250115
  Serious: Yes (Hospitalization, Disabling, Other)
  Sender: AUROBINDO
  Company Number: DE-002147023-NVSC2020DE007012

PATIENT
  Sex: Male
  Weight: 150 kg

DRUGS (68)
  1. AMIODARONE [Suspect]
     Active Substance: AMIODARONE
     Dosage: UNK
     Route: 065
  2. VALSARTAN [Suspect]
     Active Substance: VALSARTAN
     Indication: Hypertension
     Dosage: UNK UNK, ONCE A DAY
     Route: 065
     Dates: start: 201710, end: 201801
  3. VALSARTAN [Suspect]
     Active Substance: VALSARTAN
     Dosage: 320 MILLIGRAM, ONCE A DAY (320 MG, QD (IN THE MORNING))
     Route: 065
  4. ENTRESTO [Suspect]
     Active Substance: SACUBITRIL\VALSARTAN
     Indication: Dilated cardiomyopathy
     Dosage: 200 MILLIGRAM, ONCE A DAY
     Route: 065
  5. ENTRESTO [Suspect]
     Active Substance: SACUBITRIL\VALSARTAN
     Indication: Myocarditis
     Dosage: 400 MILLIGRAM, ONCE A DAY (200 MG, BID (97/103 MG, MORNING AND EVENING))
     Route: 065
  6. SPIRONOLACTONE [Suspect]
     Active Substance: SPIRONOLACTONE
     Indication: Cardiac failure
     Dosage: UNK
     Route: 065
  7. VALSARTAN [Suspect]
     Active Substance: VALSARTAN
     Indication: Product used for unknown indication
     Dosage: 320 MILLIGRAM
     Route: 065
  8. VALSARTAN [Suspect]
     Active Substance: VALSARTAN
     Dosage: 80 MILLIGRAM
     Route: 065
     Dates: start: 201412, end: 2015
  9. VALSARTAN [Suspect]
     Active Substance: VALSARTAN
     Dosage: 25 MILLIGRAM, ONCE A DAY
     Route: 065
     Dates: start: 2015
  10. VALSARTAN [Suspect]
     Active Substance: VALSARTAN
     Dosage: UNK UNK, ONCE A DAY (320/25 MG, QD)
     Route: 065
     Dates: start: 201607, end: 201704
  11. VALSARTAN [Suspect]
     Active Substance: VALSARTAN
     Dosage: UNK UNK, ONCE A DAY (320/25 MG, QD)
     Route: 065
     Dates: start: 2015, end: 201605
  12. VALSARTAN [Suspect]
     Active Substance: VALSARTAN
     Dosage: UNK UNK, ONCE A DAY(320/25 MG, QD)
     Route: 065
     Dates: start: 201801, end: 201804
  13. VALSARTAN [Suspect]
     Active Substance: VALSARTAN
     Dosage: UNK UNK, ONCE A DAY(320/25 MG, QD)
     Route: 065
     Dates: start: 201707, end: 201710
  14. VALSARTAN [Suspect]
     Active Substance: VALSARTAN
     Indication: Hypertension
     Dosage: 320MG / 25MG
     Route: 065
     Dates: start: 201710, end: 201801
  15. VALSARTAN [Suspect]
     Active Substance: VALSARTAN
     Dosage: 320MG / 25MG
     Route: 065
     Dates: start: 201804, end: 201807
  16. ALLOPURINOL [Concomitant]
     Active Substance: ALLOPURINOL
     Indication: Product used for unknown indication
     Dosage: 300 MILLIGRAM, ONCE A DAY EVENING
     Route: 065
  17. AJMALINE [Concomitant]
     Active Substance: AJMALINE
     Indication: Product used for unknown indication
     Dosage: 80 MILLIGRAM
     Route: 065
     Dates: start: 20150220
  18. AMIODARONE [Concomitant]
     Active Substance: AMIODARONE
     Indication: Product used for unknown indication
     Dosage: UNK
     Route: 065
     Dates: start: 201411
  19. ARCOXIA [Concomitant]
     Active Substance: ETORICOXIB
     Indication: Product used for unknown indication
     Dosage: 90 MILLIGRAM, ONCE A DAY
     Route: 065
  20. ARCOXIA [Concomitant]
     Active Substance: ETORICOXIB
     Dosage: UNK (AS NEEDED)
     Route: 065
  21. Bepanthen [Concomitant]
     Indication: Product used for unknown indication
     Dosage: WOUND AND HEALING, AS NEEDED
     Route: 065
  22. NITRENDIPINE [Concomitant]
     Active Substance: NITRENDIPINE
     Indication: Product used for unknown indication
     Dosage: UNK
     Route: 060
     Dates: start: 201910
  23. BISOPROLOL FUMARATE [Concomitant]
     Active Substance: BISOPROLOL FUMARATE
     Indication: Product used for unknown indication
     Dosage: UNK, ONCE A DAY
     Route: 065
  24. BISOPROLOL FUMARATE [Concomitant]
     Active Substance: BISOPROLOL FUMARATE
     Dosage: 5 MILLIGRAM, ONCE A DAY
     Route: 065
  25. BISOPROLOL [Concomitant]
     Active Substance: BISOPROLOL\BISOPROLOL FUMARATE
     Indication: Product used for unknown indication
     Dosage: 4 DOSAGE FORM, ONCE A DAY
     Route: 065
  26. BISOPROLOL [Concomitant]
     Active Substance: BISOPROLOL\BISOPROLOL FUMARATE
     Dosage: 10 MILLIGRAM, ONCE A DAY 5 MG, BID (MORNING AND EVENING))
     Route: 048
  27. BISOPROLOL [Concomitant]
     Active Substance: BISOPROLOL\BISOPROLOL FUMARATE
     Dosage: UNK, QD (1.5X 2.5 MG, MORNING)
     Route: 065
  28. BISOPROLOL [Concomitant]
     Active Substance: BISOPROLOL\BISOPROLOL FUMARATE
     Dosage: 2.5 MILLIGRAM, ONCE A DAY
     Route: 065
  29. BISOPROLOL [Concomitant]
     Active Substance: BISOPROLOL\BISOPROLOL FUMARATE
     Dosage: UNK, QD (MORNING)
     Route: 065
  30. BISOPROLOL [Concomitant]
     Active Substance: BISOPROLOL\BISOPROLOL FUMARATE
     Dosage: 7.5, QD
     Route: 065
  31. BISOPROLOL FUMARATE [Concomitant]
     Active Substance: BISOPROLOL FUMARATE
     Indication: Product used for unknown indication
     Dosage: 10 MILLIGRAM, ONCE A DAY, 5 MG, BID
     Route: 048
  32. CANDESARTAN ABZ [Concomitant]
     Indication: Hypertension
     Dosage: 32 MILLIGRAM, ONCE A DAY
     Route: 065
  33. CANDESARTAN CILEXETIL [Concomitant]
     Active Substance: CANDESARTAN CILEXETIL
     Indication: Hypertension
     Dosage: UNK
     Route: 065
  34. DEXAMETHASONE [Concomitant]
     Active Substance: DEXAMETHASONE
     Indication: Product used for unknown indication
     Dosage: 4 MILLIGRAM
     Route: 065
     Dates: start: 201507
  35. FENTANYL [Concomitant]
     Active Substance: FENTANYL
     Indication: Product used for unknown indication
     Dosage: 25 MICROGRAM
     Route: 065
     Dates: start: 20150220, end: 20150220
  36. FUROSEMIDE [Concomitant]
     Active Substance: FUROSEMIDE
     Indication: Product used for unknown indication
     Dosage: 40 MILLIGRAM, ONCE A DAY
     Route: 065
     Dates: start: 201910
  37. FUROSEMIDE [Concomitant]
     Active Substance: FUROSEMIDE
     Dosage: 500 MILLIGRAM
     Route: 065
  38. HYDROCHLOROTHIAZIDE [Concomitant]
     Active Substance: HYDROCHLOROTHIAZIDE
     Indication: Product used for unknown indication
     Dosage: 5 MILLIGRAM, ONCE A DAY
     Route: 065
  39. HEPARIN [Concomitant]
     Active Substance: HEPARIN SODIUM
     Indication: Biopsy bone marrow
     Dosage: 15000 IU + 10000 IU
     Route: 042
     Dates: start: 20150220, end: 20150220
  40. HYDROCHLOROTHIAZIDE [Concomitant]
     Active Substance: HYDROCHLOROTHIAZIDE
     Indication: Product used for unknown indication
     Dosage: 2.5 MILLIGRAM, ONCE A DAY
     Route: 065
  41. JELLIPROCT [Concomitant]
     Indication: Product used for unknown indication
     Dosage: UNK
     Route: 065
     Dates: start: 201901
  42. LASIX [Concomitant]
     Active Substance: FUROSEMIDE
     Indication: Product used for unknown indication
     Dosage: 20 MILLIGRAM
     Route: 042
     Dates: start: 201912, end: 201912
  43. LASIX [Concomitant]
     Active Substance: FUROSEMIDE
     Dosage: 40 MILLIGRAM, (ONCE DOSE IN THE MORNING, HALF OF A DOSE AT NOON (1-1/2-0)
     Route: 042
     Dates: start: 201912, end: 201912
  44. DIPYRONE [Concomitant]
     Active Substance: DIPYRONE
     Indication: Product used for unknown indication
     Dosage: 4 DOSAGE FORM, ONCE A DAY
     Route: 065
  45. Novalgin [Concomitant]
     Indication: Product used for unknown indication
     Dosage: 500 MILLIGRAM (4X DAILY IF NEEDED)
     Route: 065
  46. Novodigal [Concomitant]
     Indication: Product used for unknown indication
     Dosage: UNK, ONCE A DAY   (UNK 0.1, QD (ONCE IN THE MORNING (1-0-0)))
     Route: 065
     Dates: start: 201410
  47. NASIC CUR [Concomitant]
     Indication: Product used for unknown indication
     Dosage: UNK, AS NECESSARY
     Route: 065
  48. OMEPRAZOLE [Concomitant]
     Active Substance: OMEPRAZOLE
     Indication: Product used for unknown indication
     Dosage: 20 MILLIGRAM, ONCE A DAY MORNING
     Route: 065
  49. OXYGEN [Concomitant]
     Active Substance: OXYGEN
     Indication: Biopsy bone marrow
     Dosage: 2 L UP TO 6 L
     Route: 065
     Dates: start: 20191218, end: 20191218
  50. PANTOPRAZOLE [Concomitant]
     Active Substance: PANTOPRAZOLE
     Indication: Product used for unknown indication
     Dosage: 20 MILLIGRAM, ONCE A DAY
     Route: 065
  51. PIROXICAM [Concomitant]
     Active Substance: PIROXICAM
     Indication: Product used for unknown indication
     Dosage: 20 MILLIGRAM
     Route: 065
     Dates: start: 201507
  52. PROPOFOL [Concomitant]
     Active Substance: PROPOFOL
     Indication: Anaesthesia
     Dosage: 2 PERCENT
     Route: 065
     Dates: start: 20150220, end: 20150220
  53. PROPOFOL [Concomitant]
     Active Substance: PROPOFOL
     Indication: Endoscopy
     Dosage: 280 MILLIGRAM
     Route: 065
     Dates: start: 20191213, end: 20191213
  54. PROPOFOL [Concomitant]
     Active Substance: PROPOFOL
     Indication: Biopsy bone marrow
     Dosage: 310 MILLIGRAM
     Route: 065
     Dates: start: 20191218, end: 20191218
  55. RAMIPRIL [Concomitant]
     Active Substance: RAMIPRIL
     Indication: Product used for unknown indication
     Dosage: 2.5 MILLIGRAM, ONCE A DAY
     Route: 065
  56. RAMIPRIL [Concomitant]
     Active Substance: RAMIPRIL
     Indication: Product used for unknown indication
     Dosage: 5 MILLIGRAM (HALF OF A DOSAGE IN THE MORNING AND IN THE EVENING
     Route: 065
     Dates: start: 201410
  57. MEPIVACAINE HYDROCHLORIDE [Concomitant]
     Active Substance: MEPIVACAINE HYDROCHLORIDE
     Indication: Local anaesthesia
     Dosage: UNK
     Route: 065
     Dates: start: 20150220, end: 20150220
  58. MEPIVACAINE HYDROCHLORIDE [Concomitant]
     Active Substance: MEPIVACAINE HYDROCHLORIDE
     Indication: Biopsy bone marrow
     Dosage: 15 ML WITH 1%
     Route: 065
     Dates: start: 20191218, end: 20191218
  59. TORSEMIDE [Concomitant]
     Active Substance: TORSEMIDE
     Indication: Product used for unknown indication
     Dosage: 40 MILLIGRAM, ONCE A DAY
     Route: 065
  60. TORSEMIDE [Concomitant]
     Active Substance: TORSEMIDE
     Dosage: 20 MILLIGRAM, ONCE A DAY (ONCE IN THE MORNING, ONCE AT NOON (1-1-0)
     Route: 065
  61. TORASEMIDE HEXAL [Concomitant]
     Indication: Product used for unknown indication
     Dosage: 10 MILLIGRAM
     Route: 065
     Dates: start: 201412
  62. TORSEMIDE [Concomitant]
     Active Substance: TORSEMIDE
     Indication: Product used for unknown indication
     Dosage: 5 MILLIGRAM, ONCE A DAY
     Route: 065
  63. VALSARTAN [Concomitant]
     Active Substance: VALSARTAN
     Indication: Product used for unknown indication
     Dosage: UNK, ONCE A DAY
     Route: 065
  64. VERAPAMIL HYDROCHLORIDE [Concomitant]
     Active Substance: VERAPAMIL HYDROCHLORIDE
     Indication: Product used for unknown indication
     Dosage: 360 MILLIGRAM, ONCE A DAY
     Route: 065
  65. BISOPROLOL [Concomitant]
     Active Substance: BISOPROLOL\BISOPROLOL FUMARATE
     Indication: Product used for unknown indication
     Dosage: UNK, ONCE A DAY (5, BID (IN THE MORNING, ONCE IN THE EVENING (1-0-1)))
     Route: 065
     Dates: start: 201504
  66. ZOPICLONE [Concomitant]
     Active Substance: ZOPICLONE
     Indication: Product used for unknown indication
     Dosage: 7.5 MILLIGRAM, AS NECESSARY
     Route: 048
  67. NASIC CUR [Concomitant]
     Indication: Product used for unknown indication
     Dosage: UNK, AS NEEDED (NOSE)
     Route: 065
     Dates: start: 201911
  68. BUTYLSCOPOLAMINE [Concomitant]
     Active Substance: BUTYLSCOPOLAMINE
     Indication: Product used for unknown indication
     Dosage: UNK
     Route: 042

REACTIONS (106)
  - Myocardial necrosis marker increased [Unknown]
  - Myocardial infarction [Unknown]
  - Syncope [Unknown]
  - Cardiac dysfunction [Unknown]
  - Cardiac failure [Unknown]
  - Pulmonary congestion [Unknown]
  - Dilated cardiomyopathy [Unknown]
  - Bundle branch block left [Unknown]
  - Ventricular extrasystoles [Unknown]
  - Dyspnoea [Unknown]
  - Myocarditis [Unknown]
  - Obstructive sleep apnoea syndrome [Unknown]
  - Cardiovascular disorder [Unknown]
  - Respiratory disorder [Unknown]
  - Breathing-related sleep disorder [Unknown]
  - Dyspnoea exertional [Unknown]
  - Ejection fraction abnormal [Unknown]
  - Ventricular enlargement [Unknown]
  - Palpitations [Unknown]
  - Sleep disorder [Unknown]
  - Leukaemia [Unknown]
  - Multiple sclerosis [Unknown]
  - Shock [Unknown]
  - Waldenstrom^s macroglobulinaemia [Unknown]
  - Atrial fibrillation [Unknown]
  - Dizziness [Unknown]
  - Gastrointestinal neoplasm [Unknown]
  - Gastrointestinal tract adenoma [Unknown]
  - Somnolence [Unknown]
  - Sleep disorder [Unknown]
  - Hyperhidrosis [Unknown]
  - Gastrointestinal dysplasia [Unknown]
  - Middle insomnia [Unknown]
  - Blood thyroid stimulating hormone increased [Unknown]
  - Haemorrhoidal haemorrhage [Unknown]
  - Tachycardia [Unknown]
  - Pulmonary hypertension [Unknown]
  - Cardiomegaly [Unknown]
  - Skin mass [Unknown]
  - Asthenia [Unknown]
  - Adenoma benign [Unknown]
  - Left ventricular dysfunction [Unknown]
  - Insomnia [Unknown]
  - B-lymphocyte count increased [Unknown]
  - Goitre [Unknown]
  - Dysphagia [Unknown]
  - General physical health deterioration [Unknown]
  - Rectal polyp [Unknown]
  - Dyspnoea at rest [Recovered/Resolved]
  - Ascites [Unknown]
  - Body fat disorder [Unknown]
  - Tricuspid valve incompetence [Unknown]
  - Drug abuse [Recovered/Resolved]
  - Mitral valve incompetence [Unknown]
  - Deafness [Unknown]
  - Hypothyroidism [Unknown]
  - Sphincter of Oddi dysfunction [Unknown]
  - Developmental hip dysplasia [Unknown]
  - Aortic valve incompetence [Unknown]
  - Rheumatoid arthritis [Unknown]
  - Gastritis erosive [Unknown]
  - Hyperthyroidism [Unknown]
  - Small intestine adenocarcinoma [Unknown]
  - Cholecystitis chronic [Unknown]
  - Acute kidney injury [Unknown]
  - Escherichia bacteraemia [Unknown]
  - Sinonasal obstruction [Unknown]
  - Ulcer [Recovered/Resolved]
  - Quality of life decreased [Unknown]
  - Gait disturbance [Unknown]
  - Oedema peripheral [Recovering/Resolving]
  - Motor dysfunction [Unknown]
  - Emotional distress [Unknown]
  - Gammopathy [Unknown]
  - Weight increased [Recovering/Resolving]
  - Gastrooesophageal reflux disease [Unknown]
  - Arthralgia [Unknown]
  - Hypotension [Unknown]
  - Blood uric acid increased [Unknown]
  - Fatigue [Unknown]
  - Acarodermatitis [Recovered/Resolved]
  - Hepatomegaly [Unknown]
  - Discouragement [Unknown]
  - Colon neoplasm [Unknown]
  - Bronchitis [Unknown]
  - Alcohol abuse [Recovered/Resolved]
  - Nausea [Unknown]
  - Diverticulum intestinal [Unknown]
  - Cough [Unknown]
  - Rash pruritic [Recovering/Resolving]
  - Hepatic steatosis [Unknown]
  - Gout [Unknown]
  - Urinary incontinence [Unknown]
  - Depression [Unknown]
  - Anxiety [Unknown]
  - Peripheral swelling [Unknown]
  - Memory impairment [Unknown]
  - Urinary tract infection [Unknown]
  - Pruritus [Unknown]
  - Inguinal hernia [Unknown]
  - Metabolic syndrome [Unknown]
  - Pleural effusion [Unknown]
  - Panic attack [Unknown]
  - Rectal neoplasm [Unknown]
  - Tracheal disorder [Unknown]
  - Product use in unapproved indication [Unknown]

NARRATIVE: CASE EVENT DATE: 20140101
